FAERS Safety Report 10240851 (Version 1)
Quarter: 2014Q2

REPORT INFORMATION
  Report Type: Spontaneous
  Country: BG (occurrence: BG)
  Receive Date: 20140617
  Receipt Date: 20140617
  Transmission Date: 20141212
  Serious: Yes (Life-Threatening, Hospitalization, Disabling, Other)
  Sender: FDA-Public Use
  Company Number: PHHY2014BG073843

PATIENT
  Age: 66 Year
  Sex: Female
  Weight: 70 kg

DRUGS (1)
  1. TASIGNA [Suspect]
     Indication: CHRONIC MYELOID LEUKAEMIA
     Dosage: 400 MG, BID
     Route: 048
     Dates: start: 20110408, end: 20140520

REACTIONS (7)
  - Acute myocardial infarction [Recovered/Resolved with Sequelae]
  - Hypokinesia [Unknown]
  - Coronary artery disease [Unknown]
  - Pain in extremity [Unknown]
  - Chest pain [Unknown]
  - Hyperhidrosis [Unknown]
  - Dizziness [Unknown]
